FAERS Safety Report 9667814 (Version 1)
Quarter: 2013Q4

REPORT INFORMATION
  Report Type: Spontaneous
  Country: US (occurrence: US)
  Receive Date: 20131104
  Receipt Date: 20131104
  Transmission Date: 20140711
  Serious: Yes (Other)
  Sender: FDA-Public Use
  Company Number: US-B.I. PHARMACEUTICALS,INC./RIDGEFIELD-2013-BI-34827BP

PATIENT
  Sex: Female

DRUGS (6)
  1. SPIRIVA [Suspect]
     Indication: CHRONIC OBSTRUCTIVE PULMONARY DISEASE
     Dosage: 18 MCG
     Route: 055
  2. ASPIRIN [Concomitant]
     Route: 048
  3. PREVACID [Concomitant]
     Route: 048
  4. SYNTHROID [Concomitant]
     Route: 048
  5. METOPROLOL [Concomitant]
     Route: 048
  6. LIPITOR [Concomitant]
     Route: 048

REACTIONS (4)
  - Laryngeal cancer [Recovered/Resolved]
  - Oropharyngeal pain [Not Recovered/Not Resolved]
  - Pharyngitis [Not Recovered/Not Resolved]
  - Sinusitis [Not Recovered/Not Resolved]
